FAERS Safety Report 8307187-9 (Version None)
Quarter: 2012Q2

REPORT INFORMATION
  Report Type: 
  Country: None (occurrence: None)
  Receive Date: 20120424
  Receipt Date: 20120417
  Transmission Date: 20120825
  Serious: Yes (Hospitalization, Other)
  Sender: FDA-Public Use
  Company Number: US-VERTEX PHARMACEUTICALS INC.-AE-2012-004240

PATIENT

DRUGS (10)
  1. RIBAVIRIN [Concomitant]
     Dates: start: 20120301
  2. RIBAVIRIN [Concomitant]
     Dates: start: 20120201
  3. PEPCID [Concomitant]
  4. PEGASYS [Concomitant]
     Indication: HEPATITIS C
     Dates: start: 20111206
  5. AGGRENOX [Concomitant]
  6. INCIVEK [Suspect]
     Indication: HEPATITIS C
     Route: 048
     Dates: start: 20111206, end: 20120301
  7. RIBAVIRIN [Concomitant]
     Indication: HEPATITIS C
     Dates: start: 20111206, end: 20120201
  8. LIPITOR [Concomitant]
  9. LISINOPRIL [Concomitant]
  10. METFORMIN HCL [Concomitant]

REACTIONS (1)
  - PULMONARY EMBOLISM [None]
